FAERS Safety Report 4838562-2 (Version None)
Quarter: 2005Q4

REPORT INFORMATION
  Report Type: 
  Country: None (occurrence: None)
  Receive Date: 20051123
  Receipt Date: 20051107
  Transmission Date: 20060501
  Serious: Yes (Other)
  Sender: FDA-Public Use
  Company Number: HP200500115

PATIENT
  Age: 42 Year
  Sex: Male
  Weight: 61.2 kg

DRUGS (3)
  1. ACCUZYME(PAPAIN, UREA) ACCUZYME(PAPAIN UREA) OINTMENT [Suspect]
     Indication: WOUND
     Dosage: SEE IMAGE
     Route: 061
     Dates: start: 20050827, end: 20050923
  2. ACCUZYME(PAPAIN, UREA) ACCUZYME(PAPAIN UREA) OINTMENT [Suspect]
     Indication: WOUND
     Dosage: SEE IMAGE
     Route: 061
     Dates: start: 20051102
  3. ANALGESICS [Concomitant]

REACTIONS (6)
  - APPLICATION SITE IRRITATION [None]
  - BLOOD PRESSURE DECREASED [None]
  - IMPAIRED HEALING [None]
  - LOSS OF CONSCIOUSNESS [None]
  - WOUND COMPLICATION [None]
  - WOUND HAEMORRHAGE [None]
